FAERS Safety Report 9016845 (Version 1)
Quarter: 2013Q1

REPORT INFORMATION
  Report Type: Spontaneous
  Country: NL (occurrence: NL)
  Receive Date: 20130117
  Receipt Date: 20130117
  Transmission Date: 20140127
  Serious: Yes (Other)
  Sender: FDA-Public Use
  Company Number: NL-VERTEX PHARMACEUTICALS INC.-2013-000720

PATIENT
  Age: 43 Year
  Sex: Male

DRUGS (7)
  1. INCIVO [Suspect]
     Indication: HEPATITIS C
     Dosage: DOSAGE FORM: TABLET
     Route: 065
  2. PEG INTERFERON [Suspect]
     Indication: HEPATITIS C
     Route: 065
  3. RIBAVIRIN [Suspect]
     Indication: HEPATITIS C
     Dosage: 400 MG, BID
     Route: 065
  4. RIBAVIRIN [Suspect]
     Dosage: 600 MG, BID
     Route: 065
  5. TENOFOVIR [Suspect]
     Indication: HIV INFECTION
     Dosage: UNK, QD
     Route: 065
  6. EMTRICITABINE [Suspect]
     Indication: HIV INFECTION
     Dosage: UNK, QD
     Route: 065
  7. ATAZANAVIR [Suspect]
     Indication: HIV INFECTION
     Dosage: 300 MG, QD
     Route: 065

REACTIONS (5)
  - Abscess jaw [Unknown]
  - Anaemia [Unknown]
  - Jaundice [Unknown]
  - Off label use [Unknown]
  - Pruritus [Unknown]
